FAERS Safety Report 14554563 (Version 2)
Quarter: 2018Q1

REPORT INFORMATION
  Report Type: Report from Study
  Country: BR (occurrence: BR)
  Receive Date: 20180220
  Receipt Date: 20180226
  Transmission Date: 20180509
  Serious: Yes (Life-Threatening)
  Sender: FDA-Public Use
  Company Number: PHHY2016BR166637

PATIENT
  Age: 67 Year
  Sex: Male
  Weight: 91 kg

DRUGS (5)
  1. COSENTYX [Suspect]
     Active Substance: SECUKINUMAB
     Dosage: 300 MG, QMO
     Route: 058
     Dates: start: 20170919
  2. COSENTYX [Suspect]
     Active Substance: SECUKINUMAB
     Dosage: 300 MG, QW
     Route: 058
     Dates: start: 20161129
  3. NEORAL [Suspect]
     Active Substance: CYCLOSPORINE
     Indication: PRODUCT USED FOR UNKNOWN INDICATION
     Route: 065
  4. COSENTYX [Suspect]
     Active Substance: SECUKINUMAB
     Dosage: 150 MG, QMO
     Route: 058
     Dates: end: 201710
  5. COSENTYX [Suspect]
     Active Substance: SECUKINUMAB
     Indication: PSORIASIS
     Dosage: 300 MG, QW
     Route: 058
     Dates: start: 20161122

REACTIONS (14)
  - Weight decreased [Unknown]
  - Skin burning sensation [Not Recovered/Not Resolved]
  - Depressed mood [Not Recovered/Not Resolved]
  - Psoriasis [Not Recovered/Not Resolved]
  - Contusion [Not Recovered/Not Resolved]
  - Skin exfoliation [Not Recovered/Not Resolved]
  - Incorrect dose administered [Unknown]
  - Insomnia [Unknown]
  - Blister [Unknown]
  - Mass [Unknown]
  - Pain [Not Recovered/Not Resolved]
  - Wound [Unknown]
  - Feeling abnormal [Not Recovered/Not Resolved]
  - Skin injury [Recovering/Resolving]

NARRATIVE: CASE EVENT DATE: 20161129
